FAERS Safety Report 12421488 (Version 2)
Quarter: 2016Q2

REPORT INFORMATION
  Report Type: Spontaneous
  Country: US (occurrence: US)
  Receive Date: 20160531
  Receipt Date: 20160606
  Transmission Date: 20160815
  Serious: Yes (Hospitalization, Other)
  Sender: FDA-Public Use
  Company Number: US-MDT-ADR-2016-00973

PATIENT
  Age: 56 Year
  Sex: Female

DRUGS (14)
  1. FISH OIL [Suspect]
     Active Substance: FISH OIL
     Route: 065
  2. CHESTOR [Suspect]
     Active Substance: UNSPECIFIED INGREDIENT
     Route: 065
  3. MULTI VITAMIN [Suspect]
     Active Substance: VITAMINS
     Route: 065
  4. GILENYA [Suspect]
     Active Substance: FINGOLIMOD HYDROCHLORIDE
     Route: 065
  5. FLOSAMAX [Suspect]
     Active Substance: UNSPECIFIED INGREDIENT
     Route: 065
  6. BACLOFEN. [Suspect]
     Active Substance: BACLOFEN
     Route: 037
  7. FENTANYL. [Suspect]
     Active Substance: FENTANYL
     Route: 037
  8. MACRODANTIN [Suspect]
     Active Substance: NITROFURANTOIN
     Route: 065
  9. AMPYRA [Suspect]
     Active Substance: DALFAMPRIDINE
     Route: 065
  10. VESICARE [Suspect]
     Active Substance: SOLIFENACIN SUCCINATE
     Route: 065
  11. ADDERALL [Suspect]
     Active Substance: AMPHETAMINE ASPARTATE\AMPHETAMINE SULFATE\DEXTROAMPHETAMINE SACCHARATE\DEXTROAMPHETAMINE SULFATE
     Route: 065
  12. FLONASE [Suspect]
     Active Substance: FLUTICASONE PROPIONATE
     Route: 065
  13. BENADRYL [Suspect]
     Active Substance: DIPHENHYDRAMINE HYDROCHLORIDE
     Route: 065
  14. ZOLOFT [Suspect]
     Active Substance: SERTRALINE HYDROCHLORIDE
     Route: 065

REACTIONS (7)
  - Sensory loss [Unknown]
  - Condition aggravated [Unknown]
  - No therapeutic response [Unknown]
  - Pain [Unknown]
  - Multiple sclerosis relapse [None]
  - Feeling abnormal [Unknown]
  - Performance status decreased [Unknown]

NARRATIVE: CASE EVENT DATE: 20160421
